FAERS Safety Report 24121318 (Version 1)
Quarter: 2024Q3

REPORT INFORMATION
  Report Type: Spontaneous
  Country: US (occurrence: None)
  Receive Date: 20240722
  Receipt Date: 20240722
  Transmission Date: 20241017
  Serious: Yes (Hospitalization)
  Sender: Public
  Company Number: None

PATIENT
  Age: 69 Year
  Sex: Female

DRUGS (1)
  1. OPSUMIT [Suspect]
     Active Substance: MACITENTAN
     Indication: Pulmonary arterial hypertension
     Dosage: 10MG  1 TIME A DAY BY MOUTH
     Route: 048
     Dates: start: 202404

REACTIONS (3)
  - Cardiac disorder [None]
  - Full blood count decreased [None]
  - Myocardial haemorrhage [None]

NARRATIVE: CASE EVENT DATE: 20240710
